FAERS Safety Report 12644335 (Version 1)
Quarter: 2016Q3

REPORT INFORMATION
  Report Type: Spontaneous
  Country: FR (occurrence: FR)
  Receive Date: 20160811
  Receipt Date: 20160811
  Transmission Date: 20161109
  Serious: Yes (Hospitalization)
  Sender: FDA-Public Use
  Company Number: FR-LUNDBECK-DKLU2017662

PATIENT
  Age: 19 Year
  Sex: Female

DRUGS (7)
  1. URBANYL [Suspect]
     Active Substance: CLOBAZAM
     Route: 048
     Dates: start: 20160322
  2. URBANYL [Suspect]
     Active Substance: CLOBAZAM
     Route: 048
     Dates: start: 20160323
  3. URBANYL [Suspect]
     Active Substance: CLOBAZAM
     Route: 048
     Dates: start: 20160329
  4. SALBUTAMOL [Concomitant]
     Active Substance: ALBUTEROL
     Indication: PRODUCT USED FOR UNKNOWN INDICATION
     Route: 065
     Dates: start: 20160316
  5. URBANYL [Suspect]
     Active Substance: CLOBAZAM
     Indication: ENCEPHALOPATHY
     Route: 048
     Dates: start: 20160321
  6. URBANYL [Suspect]
     Active Substance: CLOBAZAM
     Route: 048
     Dates: start: 20160327
  7. AUGMENTIN [Concomitant]
     Active Substance: AMOXICILLIN\CLAVULANATE POTASSIUM
     Indication: PRODUCT USED FOR UNKNOWN INDICATION
     Route: 065
     Dates: start: 20160316

REACTIONS (2)
  - Oxygen saturation decreased [Recovered/Resolved]
  - Somnolence [Recovered/Resolved]

NARRATIVE: CASE EVENT DATE: 20160327
